FAERS Safety Report 10576796 (Version 1)
Quarter: 2014Q4

REPORT INFORMATION
  Report Type: Spontaneous
  Country: US (occurrence: None)
  Receive Date: 20141110
  Receipt Date: 20141110
  Transmission Date: 20150529
  Serious: Yes (Other)
  Sender: FDA-Public Use
  Company Number: None

PATIENT
  Age: 47 Year
  Sex: Female
  Weight: 56.7 kg

DRUGS (1)
  1. JUVEDERM [Suspect]
     Active Substance: HYALURONIC ACID
     Indication: SKIN WRINKLING
     Dosage: ONE TIME INJECTION; GIVEN INTO/UNDER THE SKIN

REACTIONS (2)
  - Herpes zoster [None]
  - Injection site reaction [None]

NARRATIVE: CASE EVENT DATE: 20140707
